FAERS Safety Report 8012793-5 (Version None)
Quarter: 2011Q4

REPORT INFORMATION
  Report Type: 
  Country: None (occurrence: None)
  Receive Date: 20111229
  Receipt Date: 20111220
  Transmission Date: 20120403
  Serious: Yes (Other)
  Sender: FDA-Public Use
  Company Number: US-JNJFOC-20111211312

PATIENT

DRUGS (15)
  1. CYCLOPHOSPHAMIDE [Suspect]
     Indication: B-CELL LYMPHOMA
     Route: 065
  2. ASPIRIN [Concomitant]
     Indication: ANTICOAGULANT THERAPY
     Route: 058
  3. DOXORUBICIN HCL [Suspect]
     Route: 042
  4. PEGFILGRASTIM [Suspect]
     Indication: B-CELL LYMPHOMA
     Route: 058
  5. VINCRISTINE [Suspect]
     Indication: B-CELL LYMPHOMA
     Route: 065
  6. DOXORUBICIN HCL [Suspect]
     Indication: B-CELL LYMPHOMA
     Route: 042
  7. VINCRISTINE [Suspect]
     Route: 065
  8. PREDNISONE TAB [Suspect]
     Route: 065
  9. RITUXIMAB [Suspect]
     Route: 065
  10. CYCLOPHOSPHAMIDE [Suspect]
     Route: 065
  11. LENALIDOMIDE [Suspect]
     Indication: B-CELL LYMPHOMA
     Route: 048
  12. LENALIDOMIDE [Suspect]
     Route: 048
  13. RITUXIMAB [Suspect]
     Indication: B-CELL LYMPHOMA
     Route: 065
  14. PREDNISONE TAB [Suspect]
     Indication: B-CELL LYMPHOMA
     Route: 065
  15. PEGFILGRASTIM [Suspect]
     Route: 058

REACTIONS (1)
  - TOXICITY TO VARIOUS AGENTS [None]
